FAERS Safety Report 20802390 (Version 1)
Quarter: 2022Q2

REPORT INFORMATION
  Report Type: Spontaneous
  Country: US (occurrence: None)
  Receive Date: 20220506
  Receipt Date: 20220506
  Transmission Date: 20220721
  Serious: Yes (Other)
  Sender: FDA-Public Use
  Company Number: None

PATIENT
  Age: 51 Year
  Sex: Female
  Weight: 67.5 kg

DRUGS (7)
  1. TOPIRAMATE [Suspect]
     Active Substance: TOPIRAMATE
     Indication: Migraine
     Dosage: FREQUENCY : TWICE A DAY;?
     Route: 048
     Dates: start: 20220401, end: 20220414
  2. TOPIRAMATE [Suspect]
     Active Substance: TOPIRAMATE
     Indication: Prophylaxis
  3. TRAMADOL [Concomitant]
     Active Substance: TRAMADOL
  4. ESTRADIOL [Concomitant]
     Active Substance: ESTRADIOL
  5. DOXYCYCLINE [Concomitant]
     Active Substance: DOXYCYCLINE
  6. LEVBID [Concomitant]
     Active Substance: HYOSCYAMINE SULFATE
  7. hyoscamine [Concomitant]

REACTIONS (3)
  - Insomnia [None]
  - Panic attack [None]
  - Depression [None]

NARRATIVE: CASE EVENT DATE: 20220410
